FAERS Safety Report 7769102-6 (Version None)
Quarter: 2011Q3

REPORT INFORMATION
  Report Type: 
  Country: None (occurrence: None)
  Receive Date: 20110922
  Receipt Date: 20110715
  Transmission Date: 20111222
  Serious: No
  Sender: FDA-Public Use
  Company Number: US-ASTRAZENECA-2011SE28875

PATIENT
  Age: 35 Year
  Sex: Female

DRUGS (14)
  1. LORAZEPAM [Concomitant]
  2. FLUOXETINE [Concomitant]
  3. SEROQUEL [Suspect]
     Indication: BIPOLAR DISORDER
     Route: 048
     Dates: end: 20110506
  4. SINGULAIR [Concomitant]
  5. PROTONIX [Concomitant]
  6. SYNTHROID [Concomitant]
  7. TOPIRAMATE [Concomitant]
  8. GABAPENTIN [Concomitant]
  9. TIZANIDINE HCL [Concomitant]
  10. BUTALBITAL [Concomitant]
  11. NAPROXEN [Concomitant]
  12. HYOSCYAMINE [Concomitant]
  13. ALBUTEROL [Concomitant]
  14. RISPERIDONE [Suspect]
     Route: 065

REACTIONS (10)
  - AGITATION [None]
  - ABDOMINAL DISCOMFORT [None]
  - MOOD SWINGS [None]
  - INSOMNIA [None]
  - HEADACHE [None]
  - DIARRHOEA [None]
  - VOMITING [None]
  - MALAISE [None]
  - NAUSEA [None]
  - DRUG DOSE OMISSION [None]
